FAERS Safety Report 17873663 (Version 1)
Quarter: 2020Q2

REPORT INFORMATION
  Report Type: Spontaneous
  Country: US (occurrence: US)
  Receive Date: 20200609
  Receipt Date: 20200609
  Transmission Date: 20200714
  Serious: No
  Sender: FDA-Public Use
  Company Number: US-LUPIN PHARMACEUTICALS INC.-2020-01124

PATIENT
  Age: 67 Year
  Sex: Female

DRUGS (1)
  1. HYDROCORTISONE. [Suspect]
     Active Substance: HYDROCORTISONE
     Indication: PAPULE
     Dosage: UNK SEVERAL TIMES (FORMULATION: OINTMENT)
     Route: 065

REACTIONS (5)
  - Visual acuity reduced [Recovered/Resolved]
  - Hypersensitivity [Recovered/Resolved]
  - Accidental exposure to product [Unknown]
  - Eye pain [Recovered/Resolved]
  - Conjunctivitis [Recovered/Resolved]
